FAERS Safety Report 21529459 (Version 2)
Quarter: 2022Q4

REPORT INFORMATION
  Report Type: Spontaneous
  Country: FR (occurrence: FR)
  Receive Date: 20221031
  Receipt Date: 20221121
  Transmission Date: 20230113
  Serious: Yes (Life-Threatening, Hospitalization, Other)
  Sender: FDA-Public Use
  Company Number: FR-AFSSAPS-PA20160131

PATIENT
  Age: 49 Year
  Sex: Male

DRUGS (15)
  1. PROPOFOL [Suspect]
     Active Substance: PROPOFOL
     Indication: Product used for unknown indication
     Dosage: ROA-20045000
     Route: 042
     Dates: start: 20160125, end: 20160125
  2. PROPOFOL [Suspect]
     Active Substance: PROPOFOL
     Indication: Product used for unknown indication
  3. ROPIVACAINE [Suspect]
     Active Substance: ROPIVACAINE
     Indication: Product used for unknown indication
     Dosage: CHLOROHYDRATE OF MONOHYDRATE; DOSE PER APPLICATION AND DAILY DOSE: 1??ROA-20045000
     Route: 042
     Dates: start: 20160125, end: 20160125
  4. ROPIVACAINE [Suspect]
     Active Substance: ROPIVACAINE
     Indication: Product used for unknown indication
  5. MIDAZOLAM [Suspect]
     Active Substance: MIDAZOLAM
     Indication: Product used for unknown indication
     Dosage: STRENGTH: 2 MG?ROA-20045000
     Route: 042
     Dates: start: 20160125, end: 20160125
  6. DROPERIDOL [Suspect]
     Active Substance: DROPERIDOL
     Indication: Product used for unknown indication
     Dosage: STRENGTH: 1.25 MG/2.5 ML?ROA-20045000
     Route: 042
     Dates: start: 20160125, end: 20160125
  7. KETOPROFEN [Suspect]
     Active Substance: KETOPROFEN
     Indication: Product used for unknown indication
     Dosage: STRENGTH: 100MG?ROA-20045000
     Route: 042
     Dates: start: 20160125, end: 20160125
  8. ACUPAN [Suspect]
     Active Substance: NEFOPAM HYDROCHLORIDE
     Indication: Product used for unknown indication
     Dosage: STRENGTH: 20MG?ROA-20045000
     Route: 042
     Dates: start: 20160125, end: 20160125
  9. KETAMINE [Suspect]
     Active Substance: KETAMINE
     Indication: Death
     Dosage: ROA-20045000
     Route: 042
     Dates: start: 20160125, end: 20160125
  10. KETAMINE [Suspect]
     Active Substance: KETAMINE
     Indication: Product used for unknown indication
  11. ATRACURIUM [Suspect]
     Active Substance: ATRACURIUM
     Indication: Product used for unknown indication
     Dosage: STRENGTH:40 MG?ROA-20045000
     Route: 042
     Dates: start: 20160125, end: 20160125
  12. RETAMINE [Suspect]
     Active Substance: RETAMINE
     Indication: Product used for unknown indication
     Dosage: STRENGTH: 20 MG?ROA-20045000
     Route: 042
     Dates: start: 20160125, end: 20160125
  13. BUPRENORPHINE HYDROCHLORIDE [Suspect]
     Active Substance: BUPRENORPHINE HYDROCHLORIDE
     Indication: Product used for unknown indication
     Dosage: DOSE PER APPLICATION AND DAILY DOSE: 1?ROA-20045000
     Route: 042
     Dates: start: 20160125, end: 20160125
  14. CLONIDINE [Suspect]
     Active Substance: CLONIDINE
     Indication: Product used for unknown indication
     Dosage: 1 VIAL?ROA-20045000
     Route: 042
     Dates: start: 20160125, end: 20160125
  15. SUFENTANIL [Suspect]
     Active Substance: SUFENTANIL
     Indication: Product used for unknown indication
     Route: 042
     Dates: start: 20160125, end: 20160125

REACTIONS (4)
  - Respiratory arrest [Recovered/Resolved with Sequelae]
  - Bradycardia [Recovered/Resolved with Sequelae]
  - Respiratory symptom [Recovered/Resolved with Sequelae]
  - Malaise [Recovered/Resolved with Sequelae]

NARRATIVE: CASE EVENT DATE: 20160125
